FAERS Safety Report 5047042-3 (Version None)
Quarter: 2006Q3

REPORT INFORMATION
  Report Type: 
  Country: None (occurrence: None)
  Receive Date: 20060703
  Receipt Date: 20060622
  Transmission Date: 20061208
  Serious: Yes (Other)
  Sender: FDA-Public Use
  Company Number: 2005107396

PATIENT
  Age: 73 Year
  Sex: Female

DRUGS (3)
  1. XALATAN [Suspect]
     Indication: INTRAOCULAR PRESSURE INCREASED
     Dosage: 1 DROP RIGHT EYE (1 DROP, 1 IN 1 D), OPHTHALMIC
     Route: 047
     Dates: start: 20050630
  2. ATENOLOL [Concomitant]
  3. MULTIVITAMIN [Concomitant]

REACTIONS (11)
  - BLOOD PRESSURE INCREASED [None]
  - DIZZINESS [None]
  - EYELASH THICKENING [None]
  - GASTRIC DISORDER [None]
  - GROWTH OF EYELASHES [None]
  - INCORRECT DOSE ADMINISTERED [None]
  - INTRAOCULAR PRESSURE INCREASED [None]
  - NAUSEA [None]
  - PHOTOPSIA [None]
  - TONGUE COATED [None]
  - VITREOUS FLOATERS [None]
